FAERS Safety Report 11780781 (Version 1)
Quarter: 2015Q4

REPORT INFORMATION
  Report Type: Spontaneous
  Country: JP (occurrence: JP)
  Receive Date: 20151126
  Receipt Date: 20151126
  Transmission Date: 20160305
  Serious: Yes (Other)
  Sender: FDA-Public Use
  Company Number: JP-009507513-1511JPN012631

PATIENT
  Age: 51 Year
  Sex: Female

DRUGS (1)
  1. DECADRON [Suspect]
     Active Substance: DEXAMETHASONE
     Indication: PRODUCT USED FOR UNKNOWN INDICATION
     Dosage: 1 AMPOULE, UNKNOWN
     Route: 042
     Dates: start: 200902, end: 200906

REACTIONS (1)
  - Osteonecrosis [Unknown]
